FAERS Safety Report 5234814-5 (Version None)
Quarter: 2007Q1

REPORT INFORMATION
  Report Type: 
  Country: None (occurrence: None)
  Receive Date: 20070209
  Receipt Date: 20070130
  Transmission Date: 20070707
  Serious: Yes (Death)
  Sender: FDA-Public Use
  Company Number: DE-PFIZER INC-2006154192

PATIENT
  Sex: Female
  Weight: 80 kg

DRUGS (2)
  1. ZYVOX [Suspect]
     Indication: ENTEROCOCCAL INFECTION
     Dosage: DAILY DOSE:600MG
     Route: 042
     Dates: start: 20061120, end: 20061127
  2. BACTRIM [Suspect]

REACTIONS (2)
  - DEATH [None]
  - THROMBOCYTOPENIA [None]
